FAERS Safety Report 9435209 (Version 2)
Quarter: 2013Q3

REPORT INFORMATION
  Report Type: Spontaneous
  Country: US (occurrence: US)
  Receive Date: 20130801
  Receipt Date: 20130805
  Transmission Date: 20140515
  Serious: No
  Sender: FDA-Public Use
  Company Number: US-BAYER-2013-092257

PATIENT
  Age: 66 Year
  Sex: Female
  Weight: 70 kg

DRUGS (6)
  1. ALEVE CAPLET [Suspect]
     Dosage: 1 UNK, UNK
     Route: 048
     Dates: start: 20130710, end: 20130724
  2. AMLODIPINE [Concomitant]
  3. ASPIRIN [Concomitant]
  4. MULTIVITAMIN [Concomitant]
  5. CALCIUM [Concomitant]
     Indication: SUPPLEMENTATION THERAPY
  6. FLAXSEED OIL [Concomitant]

REACTIONS (8)
  - Pruritus [Not Recovered/Not Resolved]
  - Hyperaesthesia [Not Recovered/Not Resolved]
  - Urticaria [Recovered/Resolved]
  - Rash macular [Not Recovered/Not Resolved]
  - Erythema [Not Recovered/Not Resolved]
  - Pruritus [Not Recovered/Not Resolved]
  - Drug hypersensitivity [None]
  - Inappropriate schedule of drug administration [None]
